FAERS Safety Report 12826933 (Version 1)
Quarter: 2016Q4

REPORT INFORMATION
  Report Type: Spontaneous
  Country: US (occurrence: US)
  Receive Date: 20161007
  Receipt Date: 20161007
  Transmission Date: 20170207
  Serious: Yes (Hospitalization)
  Sender: FDA-Public Use
  Company Number: US-VERTEX PHARMACEUTICALS-2016-005707

PATIENT
  Age: 33 Year
  Sex: Male

DRUGS (7)
  1. TOBRAMYCIN. [Concomitant]
     Active Substance: TOBRAMYCIN
  2. CAYSTON [Concomitant]
     Active Substance: AZTREONAM
  3. ORKAMBI [Suspect]
     Active Substance: IVACAFTOR\LUMACAFTOR
     Indication: CYSTIC FIBROSIS
     Dosage: 400/250 MG, BID
     Route: 048
     Dates: start: 20150725
  4. PULMOZYME [Concomitant]
     Active Substance: DORNASE ALFA
  5. COLISTIN [Concomitant]
     Active Substance: COLISTIN
  6. AQUADEKS [Concomitant]
     Active Substance: MINERALS\VITAMINS
  7. SODIUM CHLORIDE. [Concomitant]
     Active Substance: SODIUM CHLORIDE

REACTIONS (1)
  - Hospitalisation [Not Recovered/Not Resolved]

NARRATIVE: CASE EVENT DATE: 20160922
